FAERS Safety Report 7215517-4 (Version None)
Quarter: 2011Q1

REPORT INFORMATION
  Report Type: 
  Country: None (occurrence: None)
  Receive Date: 20110107
  Receipt Date: 20101230
  Transmission Date: 20110831
  Serious: Yes (Death, Hospitalization)
  Sender: FDA-Public Use
  Company Number: B0691572A

PATIENT
  Sex: Female

DRUGS (1)
  1. VENTOLIN [Suspect]
     Indication: ASTHMA
     Route: 055

REACTIONS (6)
  - ACUTE PULMONARY OEDEMA [None]
  - TACHYCARDIA [None]
  - CARDIO-RESPIRATORY ARREST [None]
  - HYPOXIA [None]
  - OVERDOSE [None]
  - CARDIAC FAILURE [None]
